FAERS Safety Report 7152426-3 (Version None)
Quarter: 2010Q4

REPORT INFORMATION
  Report Type: 
  Country: None (occurrence: None)
  Receive Date: 20101208
  Receipt Date: 20101208
  Transmission Date: 20110411
  Serious: Yes (Other)
  Sender: FDA-Public Use
  Company Number: None

PATIENT
  Sex: Male
  Weight: 111.1313 kg

DRUGS (17)
  1. PEGASYS [Suspect]
     Indication: HEPATITIS C
     Dosage: 3 X 200MG CAPS Q AM + PM PO
     Route: 048
     Dates: start: 20100624, end: 20101206
  2. PEGASYS [Suspect]
  3. PEGASYS [Suspect]
  4. PEGASYS [Suspect]
  5. RIBASPHERE [Suspect]
     Indication: HEPATITIS C
     Dosage: 180 MCG Q WEEK SUBCUTANEOUSLY
     Route: 058
     Dates: start: 20100624, end: 20101206
  6. RIBASPHERE [Suspect]
  7. RIBASPHERE [Suspect]
  8. TRAMADOL [Concomitant]
  9. CYCLOBENZAPRINE [Concomitant]
  10. ALPRAZOLAM [Concomitant]
  11. BENAZEPRIL HYDROCHLORIDE AND HYDROCHLOROTHIAZIDE [Concomitant]
  12. AMLODIPINE [Concomitant]
  13. PREDNISONE [Concomitant]
  14. HYDROCHLOROTHIAZIDE [Concomitant]
  15. NABUMETONE [Concomitant]
  16. PRILOSEC OTC [Concomitant]
  17. BENAZEPRIL [Concomitant]

REACTIONS (1)
  - CONVULSION [None]
